FAERS Safety Report 5140012-6 (Version None)
Quarter: 2006Q4

REPORT INFORMATION
  Report Type: 
  Country: None (occurrence: None)
  Receive Date: 20061025
  Receipt Date: 20061012
  Transmission Date: 20070319
  Serious: Yes (Other)
  Sender: FDA-Public Use
  Company Number: 2006125864

PATIENT
  Age: 67 Year
  Sex: Male
  Weight: 97.5234 kg

DRUGS (18)
  1. NEURONTIN [Suspect]
     Indication: NEUROPATHY
  2. LYRICA [Suspect]
     Indication: NEUROPATHY
     Dates: start: 20060101
  3. LIPITOR [Concomitant]
  4. CELEBREX [Concomitant]
  5. MESALAMINE [Concomitant]
  6. VALSARTAN [Concomitant]
  7. PREDNISONE TAB [Concomitant]
  8. COREG [Concomitant]
  9. FUROSEMIDE [Concomitant]
  10. PENTOXIFYLLINE [Concomitant]
  11. ZETIA [Concomitant]
  12. CORTENEMA [Concomitant]
  13. ACETYLSALICYLIC ACID SRT [Concomitant]
  14. XANAX [Concomitant]
  15. VICODIN [Concomitant]
  16. MIDODRINE [Concomitant]
  17. FELODIPINE [Concomitant]
  18. FOSAMAX [Concomitant]

REACTIONS (3)
  - ILL-DEFINED DISORDER [None]
  - MENIERE'S DISEASE [None]
  - SPINAL FRACTURE [None]
